FAERS Safety Report 6365012-X (Version None)
Quarter: 2009Q3

REPORT INFORMATION
  Report Type: 
  Country: None (occurrence: None)
  Receive Date: 20090919
  Receipt Date: 20090803
  Transmission Date: 20100115
  Serious: No
  Sender: FDA-Public Use
  Company Number: US-ABBOTT-09P-163-0589626-00

PATIENT
  Sex: Female

DRUGS (3)
  1. HUMIRA [Suspect]
     Indication: CROHN'S DISEASE
     Dates: start: 20090601
  2. SYNTHROID [Concomitant]
     Indication: THYROID DISORDER
  3. FIBER [Concomitant]
     Indication: SUPPLEMENTATION THERAPY

REACTIONS (1)
  - DRUG DOSE OMISSION [None]
